FAERS Safety Report 17087364 (Version 1)
Quarter: 2019Q4

REPORT INFORMATION
  Report Type: Report from Study
  Country: AR (occurrence: AR)
  Receive Date: 20191128
  Receipt Date: 20191128
  Transmission Date: 20200122
  Serious: Yes (Other)
  Sender: FDA-Public Use
  Company Number: AR-BRISTOL-MYERS SQUIBB COMPANY-BMS-2019-114092

PATIENT
  Age: 61 Year
  Sex: Male

DRUGS (1)
  1. APIXABAN [Suspect]
     Active Substance: APIXABAN
     Indication: PRODUCT USED FOR UNKNOWN INDICATION
     Dosage: 5 MILLIGRAM (TWO 2.5 MG)
     Route: 065
     Dates: start: 20190925, end: 2019

REACTIONS (2)
  - Arterial occlusive disease [Unknown]
  - Chest pain [Unknown]

NARRATIVE: CASE EVENT DATE: 20191021
